FAERS Safety Report 8106541-8 (Version None)
Quarter: 2012Q1

REPORT INFORMATION
  Report Type: 
  Country: None (occurrence: None)
  Receive Date: 20120202
  Receipt Date: 20120123
  Transmission Date: 20120608
  Serious: Yes (Other)
  Sender: FDA-Public Use
  Company Number: US-BRISTOL-MYERS SQUIBB COMPANY-16362352

PATIENT
  Sex: Female

DRUGS (1)
  1. WARFARIN SODIUM [Suspect]
     Dosage: ABOUT 10 WEEKS

REACTIONS (5)
  - VERTIGO [None]
  - NAUSEA [None]
  - DECREASED APPETITE [None]
  - CONTUSION [None]
  - PAIN [None]
